APPROVED DRUG PRODUCT: AMINESS 5.2% ESSENTIAL AMINO ACIDS W/ HISTADINE
Active Ingredient: AMINO ACIDS
Strength: 5.2% (5.2GM/100ML)
Dosage Form/Route: INJECTABLE;INJECTION
Application: N018901 | Product #001
Applicant: HOSPIRA INC
Approved: Apr 6, 1984 | RLD: No | RS: No | Type: DISCN